FAERS Safety Report 8882846 (Version 1)
Quarter: 2012Q4

REPORT INFORMATION
  Report Type: 
  Country: US (occurrence: US)
  Receive Date: 20121102
  Receipt Date: 20121102
  Transmission Date: 20130627
  Serious: No
  Sender: FDA-Public Use
  Company Number: US-ASTRAZENECA-2011SE70056

PATIENT
  Age: 63 Year
  Sex: Female
  Weight: 88.5 kg

DRUGS (5)
  1. CRESTOR [Suspect]
     Indication: BLOOD CHOLESTEROL ABNORMAL
     Route: 048
  2. STOOL SOFTENER [Concomitant]
  3. BABY ASPIRIN [Concomitant]
  4. FISH OIL [Concomitant]
  5. METOPROLOL [Concomitant]

REACTIONS (2)
  - Bone pain [Unknown]
  - Myalgia [Unknown]
